FAERS Safety Report 18731711 (Version 1)
Quarter: 2021Q1

REPORT INFORMATION
  Report Type: Report from Study
  Country: IN (occurrence: IN)
  Receive Date: 20210112
  Receipt Date: 20210112
  Transmission Date: 20210419
  Serious: Yes (Death)
  Sender: FDA-Public Use
  Company Number: IN-ASTRAZENECA-2021A004165

PATIENT

DRUGS (1)
  1. LYNPARZA [Suspect]
     Active Substance: OLAPARIB
     Dosage: TAKING MEDICINE ON 15 TO 20 DAYS OF INTERVAL
     Route: 048

REACTIONS (2)
  - Death [Fatal]
  - Haemoglobin decreased [Unknown]
